FAERS Safety Report 15649898 (Version 1)
Quarter: 2018Q4

REPORT INFORMATION
  Report Type: Spontaneous
  Country: TG (occurrence: TG)
  Receive Date: 20181123
  Receipt Date: 20181123
  Transmission Date: 20190205
  Serious: Yes (Other)
  Sender: FDA-Public Use
  Company Number: TG-LUPIN PHARMACEUTICALS INC.-2018-08077

PATIENT
  Age: 28 Year
  Sex: Male

DRUGS (1)
  1. TRAMADOL. [Suspect]
     Active Substance: TRAMADOL
     Indication: PRODUCT USED FOR UNKNOWN INDICATION
     Dosage: 3 DF, QD (MORNING ROUTINE FOR THE PAST 5 YEARS, GREEN CAPSULES)
     Route: 065

REACTIONS (4)
  - Drug abuse [Unknown]
  - Insomnia [Unknown]
  - Agitation [Unknown]
  - Drug withdrawal syndrome [Unknown]
